FAERS Safety Report 24173988 (Version 1)
Quarter: 2024Q3

REPORT INFORMATION
  Report Type: Report from Study
  Country: ZA (occurrence: ZA)
  Receive Date: 20240805
  Receipt Date: 20240805
  Transmission Date: 20241017
  Serious: Yes (Disabling)
  Sender: ABBVIE
  Company Number: ZA-ABBOTT-2024A-1385409

PATIENT
  Age: 47 Year
  Sex: Male

DRUGS (14)
  1. FENOFIBRATE [Suspect]
     Active Substance: FENOFIBRATE
     Indication: Blood cholesterol abnormal
     Dosage: 200 MG TAKE ONE CAPSULE AT NIGHT
     Route: 048
  2. ESOMEPRAZOLE MAGNESIUM [Concomitant]
     Active Substance: ESOMEPRAZOLE MAGNESIUM
     Indication: Ulcer
     Dosage: 40 MG TAKE ONE TABLET IN THE MORNING
     Route: 048
  3. ZOLPIDEM TARTRATE [Concomitant]
     Active Substance: ZOLPIDEM TARTRATE
     Indication: Sleep disorder
     Dosage: 12.5 MG TAKE ONE TABLET AT NIGHT, STILNOX MR
     Route: 048
  4. VESICARE [Concomitant]
     Active Substance: SOLIFENACIN SUCCINATE
     Indication: Bladder disorder
     Dosage: 10 MG TAKE ONE TABLET ONCE PER DAY
     Route: 048
  5. DOCUSATE [Concomitant]
     Active Substance: DOCUSATE
     Indication: Product used for unknown indication
     Dosage: 13.5 MG TAKE FOUR TABLETS THREE TIMES PER WEEK
     Route: 048
  6. ALPRAZOLAM [Concomitant]
     Active Substance: ALPRAZOLAM
     Indication: Anxiety
     Dosage: 0.5 MG TAKE ONE TABLET IN THE MORNING
     Route: 048
  7. COVAREX [Concomitant]
     Indication: Product used for unknown indication
     Dosage: 2 % APPLY THREE TIMES A DAY TO AFFECTED PARTS
     Route: 061
  8. FLUCONAZOLE [Concomitant]
     Active Substance: FLUCONAZOLE
     Indication: Product used for unknown indication
     Dosage: 200 MG TAKE ONE CAPSULE ONCE PER DAY
     Route: 048
  9. ULTRACET [Concomitant]
     Active Substance: ACETAMINOPHEN\TRAMADOL HYDROCHLORIDE
     Indication: Pain
     Dosage: TAKE TWO TABLETS THREE TIMES A DAY
     Route: 048
  10. SENOKOT [Concomitant]
     Active Substance: SENNOSIDES
     Indication: Product used for unknown indication
     Dosage: 7.5 MG TAKE FOUR TABLETS THREE TIMES PER WEEK
     Route: 048
  11. Dulcolax [Concomitant]
     Indication: Product used for unknown indication
     Dosage: 10 MG INSERT ONE PER RECTUM THREE TIMES A WEEK
  12. AMITRIPTYLINE [Concomitant]
     Active Substance: AMITRIPTYLINE
     Indication: Depression
     Dosage: 10 MG TAKE TWO TABLETS AT NIGHT
     Route: 048
  13. LYRICA [Concomitant]
     Active Substance: PREGABALIN
     Indication: Epilepsy
     Dosage: 75 MG TAKE ONE CAPSULE IN THE MORNING AND ONE AT NIGHT
     Route: 048
  14. BETAHISTINE HYDROCHLORIDE [Concomitant]
     Active Substance: BETAHISTINE HYDROCHLORIDE
     Indication: Vertigo
     Dosage: 24 MG TAKE ONE TABLET TWICE A DAY
     Route: 048

REACTIONS (1)
  - Wheelchair user [Unknown]
